FAERS Safety Report 7916985-2 (Version None)
Quarter: 2011Q4

REPORT INFORMATION
  Report Type: 
  Country: None (occurrence: None)
  Receive Date: 20111116
  Receipt Date: 20111116
  Transmission Date: 20120403
  Serious: Yes (Other)
  Sender: FDA-Public Use
  Company Number: None

PATIENT
  Age: 46 Year
  Sex: Female
  Weight: 47.627 kg

DRUGS (1)
  1. TRANSDERM SCOP [Suspect]
     Indication: MOTION SICKNESS
     Dosage: 1 PATCH
     Route: 062
     Dates: start: 20111102, end: 20111105

REACTIONS (5)
  - DRY SKIN [None]
  - ERYTHEMA [None]
  - SWELLING [None]
  - NAUSEA [None]
  - EYELID IRRITATION [None]
